FAERS Safety Report 18189574 (Version 2)
Quarter: 2020Q3

REPORT INFORMATION
  Report Type: Spontaneous
  Country: US (occurrence: US)
  Receive Date: 20200825
  Receipt Date: 20200929
  Transmission Date: 20201103
  Serious: Yes (Death, Life-Threatening, Hospitalization, Other)
  Sender: FDA-Public Use
  Company Number: US-LUPIN PHARMACEUTICALS INC.-2020-05017

PATIENT
  Age: 48 Year
  Sex: Male

DRUGS (20)
  1. DOXYCYCLINE. [Suspect]
     Active Substance: DOXYCYCLINE
     Indication: PNEUMONIA
     Dosage: UNK
     Route: 065
  2. VITAMIN K [Concomitant]
     Active Substance: PHYTONADIONE
     Indication: COAGULOPATHY
     Route: 065
  3. ALBUTEROL [SALBUTAMOL] [Concomitant]
     Active Substance: ALBUTEROL
     Indication: PRODUCT USED FOR UNKNOWN INDICATION
     Dosage: UNK
     Route: 065
  4. FLUCONAZOLE. [Concomitant]
     Active Substance: FLUCONAZOLE
     Indication: EVIDENCE BASED TREATMENT
     Route: 065
  5. METHYLPREDNISOLONE. [Concomitant]
     Active Substance: METHYLPREDNISOLONE
     Indication: HAEMOPHAGOCYTIC LYMPHOHISTIOCYTOSIS
     Dosage: 1 GRAM
     Route: 065
  6. ETOPOSIDE. [Suspect]
     Active Substance: ETOPOSIDE
     Dosage: 75 MILLIGRAM/SQ. METER
     Route: 065
  7. CEFEPIME [Suspect]
     Active Substance: CEFEPIME HYDROCHLORIDE
     Indication: SEPSIS
     Dosage: UNK
     Route: 065
  8. DEXAMETHASONE. [Suspect]
     Active Substance: DEXAMETHASONE
     Indication: HAEMOPHAGOCYTIC LYMPHOHISTIOCYTOSIS
     Dosage: 20 MILLIGRAM, BID
     Route: 048
  9. ATOVAQUONE. [Concomitant]
     Active Substance: ATOVAQUONE
     Route: 065
  10. VANCOMYCIN [Suspect]
     Active Substance: VANCOMYCIN
     Indication: SEPSIS
     Dosage: UNK
     Route: 065
  11. DEXAMETHASONE. [Suspect]
     Active Substance: DEXAMETHASONE
     Dosage: 20 MILLIGRAM, QD (PER 10MG/M2)
     Route: 048
  12. OXYBUTYNIN. [Concomitant]
     Active Substance: OXYBUTYNIN CHLORIDE
     Indication: PRODUCT USED FOR UNKNOWN INDICATION
     Dosage: UNK
     Route: 065
  13. VALACICLOVIR [Concomitant]
     Active Substance: VALACYCLOVIR HYDROCHLORIDE
     Indication: EPSTEIN-BARR VIRUS INFECTION
     Dosage: UNK
     Route: 065
  14. PANTOPRAZOLE [Concomitant]
     Active Substance: PANTOPRAZOLE
     Indication: PRODUCT USED FOR UNKNOWN INDICATION
     Dosage: UNK
     Route: 065
  15. TERAZOSIN [Concomitant]
     Active Substance: TERAZOSIN HYDROCHLORIDE
     Indication: PRODUCT USED FOR UNKNOWN INDICATION
     Route: 065
  16. ETOPOSIDE. [Suspect]
     Active Substance: ETOPOSIDE
     Indication: HAEMOPHAGOCYTIC LYMPHOHISTIOCYTOSIS
     Dosage: 150 MILLIGRAM/SQ. METER (344MG)
     Route: 065
  17. MEROPENEM. [Suspect]
     Active Substance: MEROPENEM
     Indication: PNEUMONIA
     Dosage: UNK
     Route: 065
  18. METHOTREXATE. [Concomitant]
     Active Substance: METHOTREXATE
     Indication: SARCOIDOSIS
     Dosage: UNK
     Route: 065
  19. IMMUNOGLOBULINS NOS [Suspect]
     Active Substance: IMMUNE GLOBULIN NOS
     Indication: HAEMOPHAGOCYTIC LYMPHOHISTIOCYTOSIS
     Dosage: UNK
     Route: 042
  20. PREDNISONE. [Concomitant]
     Active Substance: PREDNISONE
     Indication: SARCOIDOSIS
     Route: 065

REACTIONS (19)
  - Neutropenia [Unknown]
  - Cardiac arrest [Fatal]
  - Febrile neutropenia [Unknown]
  - Confusional state [Unknown]
  - Shock haemorrhagic [Unknown]
  - Pleural effusion [Unknown]
  - Hypovolaemic shock [Unknown]
  - Acute kidney injury [Unknown]
  - Ascites [Unknown]
  - Pneumonia [Unknown]
  - Thrombocytopenia [Fatal]
  - Intra-abdominal haemorrhage [Unknown]
  - Gastrointestinal haemorrhage [Unknown]
  - Lactic acidosis [Unknown]
  - Pulmonary oedema [Unknown]
  - Pulseless electrical activity [Fatal]
  - Drug ineffective [Fatal]
  - Depressed level of consciousness [Unknown]
  - Renal tubular necrosis [Unknown]
